FAERS Safety Report 13424259 (Version 1)
Quarter: 2017Q2

REPORT INFORMATION
  Report Type: Spontaneous
  Country: JP (occurrence: JP)
  Receive Date: 20170410
  Receipt Date: 20170410
  Transmission Date: 20170830
  Serious: Yes (Other)
  Sender: FDA-Public Use
  Company Number: JP-PFIZER INC-2017150288

PATIENT
  Age: 12 Year

DRUGS (3)
  1. HYDROCORTISONE. [Suspect]
     Active Substance: HYDROCORTISONE
     Indication: ADRENOLEUKODYSTROPHY
     Dosage: ON A NORMAL STATE (10 MG/M2/DAY) AND THAT ON A STATE OF STRESS (60 TO 100 MG/M2/DAY)
  2. HYDROCORTISONE. [Suspect]
     Active Substance: HYDROCORTISONE
     Dosage: 21 MG/M2, DAILY
  3. DEXAMETHASONE. [Suspect]
     Active Substance: DEXAMETHASONE
     Indication: HOLOPROSENCEPHALY
     Dosage: 0.5 MG, DAILY

REACTIONS (2)
  - Overdose [Unknown]
  - Diabetes mellitus [Unknown]
